FAERS Safety Report 10065464 (Version 2)
Quarter: 2014Q2

REPORT INFORMATION
  Report Type: Spontaneous
  Country: JP (occurrence: JP)
  Receive Date: 20140408
  Receipt Date: 20140408
  Transmission Date: 20141212
  Serious: Yes (Death, Hospitalization)
  Sender: FDA-Public Use
  Company Number: JP-BAYER-2013-103962

PATIENT
  Age: 53 Year
  Sex: Female
  Weight: 40 kg

DRUGS (8)
  1. STIVARGA [Suspect]
     Indication: COLON CANCER
     Dosage: 160 MG, QD (ON FOR 3 WEEKS AND OFF FOR 1 WEEK)
     Route: 048
     Dates: start: 20130601, end: 20130618
  2. STIVARGA [Suspect]
     Indication: COLON CANCER
     Dosage: 160 MG, QD
     Route: 048
     Dates: start: 20130627, end: 20130709
  3. HIRUDOID [Concomitant]
     Indication: DRUG TOXICITY PROPHYLAXIS
     Dosage: UNK
     Route: 061
  4. KERATINAMIN [Concomitant]
     Indication: DRUG TOXICITY PROPHYLAXIS
     Dosage: UNK
     Route: 061
  5. OXINORM [OXYCODONE HYDROCHLORIDE] [Concomitant]
     Indication: PAIN
     Dosage: DAILY DOSE 25 MG
     Route: 048
  6. LYRICA [Concomitant]
     Dosage: DAILY DOSE 75 MG
     Route: 048
  7. ALLEGRA [Concomitant]
     Indication: DRUG TOXICITY PROPHYLAXIS
     Dosage: DAILY DOSE 120 MG
     Route: 048
  8. CALONAL [Concomitant]
     Dosage: DAILY DOSE 2400 MG
     Route: 048

REACTIONS (3)
  - Dysphonia [None]
  - Stomatitis [Recovering/Resolving]
  - Colon cancer [Fatal]
